FAERS Safety Report 6709241-1 (Version None)
Quarter: 2010Q2

REPORT INFORMATION
  Report Type: 
  Country: None (occurrence: None)
  Receive Date: 20100503
  Receipt Date: 20100503
  Transmission Date: 20101027
  Serious: No
  Sender: FDA-Public Use
  Company Number: None

PATIENT
  Sex: Female
  Weight: 72.5755 kg

DRUGS (1)
  1. CLINDAMYCIN HCL [Suspect]
     Indication: INFECTION
     Dosage: 1 CAPSULE 4 X A DAY
     Dates: start: 20100319, end: 20100406

REACTIONS (3)
  - DIARRHOEA [None]
  - HYPOPHAGIA [None]
  - SWELLING FACE [None]
